FAERS Safety Report 5593601-9 (Version None)
Quarter: 2008Q1

REPORT INFORMATION
  Report Type: 
  Country: None (occurrence: None)
  Receive Date: 20080116
  Receipt Date: 20080110
  Transmission Date: 20080703
  Serious: Yes (Hospitalization)
  Sender: FDA-Public Use
  Company Number: US-BAXTER-2008BH000351

PATIENT
  Sex: Male

DRUGS (3)
  1. REGLAN [Suspect]
     Indication: DRUG USE FOR UNKNOWN INDICATION
     Dosage: DOSE UNIT:UNKNOWN
     Route: 042
     Dates: start: 20071218, end: 20071218
  2. BENADRYL [Suspect]
     Indication: DRUG USE FOR UNKNOWN INDICATION
     Dosage: DOSE UNIT:UNKNOWN
     Route: 042
     Dates: start: 20071218, end: 20071218
  3. CHEMOTHERAPY [Suspect]
     Indication: DRUG USE FOR UNKNOWN INDICATION
     Route: 042
     Dates: start: 20071218, end: 20071218

REACTIONS (4)
  - INCORRECT DRUG ADMINISTRATION RATE [None]
  - MALAISE [None]
  - MECHANICAL VENTILATION [None]
  - RENAL FAILURE [None]
